FAERS Safety Report 4928356-1 (Version None)
Quarter: 2006Q1

REPORT INFORMATION
  Report Type: 
  Country: None (occurrence: None)
  Receive Date: 20060223
  Receipt Date: 20060208
  Transmission Date: 20060701
  Serious: Yes (Hospitalization)
  Sender: FDA-Public Use
  Company Number: 2006-DE-00673GD

PATIENT
  Age: 25 Year
  Sex: Female

DRUGS (2)
  1. ORAMORPH SR [Suspect]
     Indication: PAIN
  2. ORAMORPH SR [Suspect]
     Indication: SICKLE CELL ANAEMIA

REACTIONS (3)
  - CONDITION AGGRAVATED [None]
  - DRUG WITHDRAWAL SYNDROME [None]
  - SICKLE CELL ANAEMIA [None]
